FAERS Safety Report 7577605-2 (Version None)
Quarter: 2011Q2

REPORT INFORMATION
  Report Type: 
  Country: None (occurrence: None)
  Receive Date: 20110628
  Receipt Date: 20100920
  Transmission Date: 20111010
  Serious: No
  Sender: FDA-Public Use
  Company Number: US-KINGPHARMUSA00001-K201001167

PATIENT
  Age: 47 Year
  Sex: Female
  Weight: 68.481 kg

DRUGS (1)
  1. BICILLIN L-A [Suspect]
     Indication: LYME DISEASE
     Dosage: 1.2 MILLION UNIT, BIW
     Route: 030
     Dates: start: 20100729

REACTIONS (5)
  - DECREASED APPETITE [None]
  - POLLAKIURIA [None]
  - TREMOR [None]
  - URINARY INCONTINENCE [None]
  - DIZZINESS [None]
